FAERS Safety Report 4733616-3 (Version None)
Quarter: 2005Q3

REPORT INFORMATION
  Report Type: 
  Country: None (occurrence: None)
  Receive Date: 20050729
  Receipt Date: 20050713
  Transmission Date: 20060218
  Serious: Yes (Hospitalization)
  Sender: FDA-Public Use
  Company Number: DE_050716432

PATIENT
  Age: 40 Year
  Sex: Male

DRUGS (3)
  1. CYMBALTA [Suspect]
     Dosage: 60 MG DAY
     Dates: start: 20050701, end: 20050713
  2. DIPYRONE TAB [Concomitant]
  3. VOLTAREN DISPERS (DICLOFENAC) [Concomitant]

REACTIONS (4)
  - COMA [None]
  - INSPIRATORY CAPACITY DECREASED [None]
  - MENTAL DISORDER [None]
  - SUICIDE ATTEMPT [None]
